FAERS Safety Report 9629690 (Version 1)
Quarter: 2013Q4

REPORT INFORMATION
  Report Type: Spontaneous
  Country: IT (occurrence: IT)
  Receive Date: 20131017
  Receipt Date: 20131017
  Transmission Date: 20140711
  Serious: Yes (Other)
  Sender: FDA-Public Use
  Company Number: IT-JNJFOC-20131003487

PATIENT
  Age: 11 Year
  Sex: Male
  Weight: 59 kg

DRUGS (1)
  1. RISPERDAL [Suspect]
     Indication: AUTISM
     Route: 048
     Dates: start: 20130322

REACTIONS (1)
  - Blood alkaline phosphatase increased [Unknown]
